FAERS Safety Report 6150910-2 (Version None)
Quarter: 2009Q2

REPORT INFORMATION
  Report Type: 
  Country: None (occurrence: None)
  Receive Date: 20090408
  Receipt Date: 20090326
  Transmission Date: 20091009
  Serious: Yes (Hospitalization)
  Sender: FDA-Public Use
  Company Number: SPI200900080

PATIENT
  Age: 85 Year
  Sex: Female
  Weight: 54.5 kg

DRUGS (2)
  1. AMITIZA [Suspect]
     Indication: CONSTIPATION
     Dosage: 24 MCG, BID, ORAL
     Route: 048
     Dates: start: 20070626, end: 20070701
  2. MIRALAX [Concomitant]

REACTIONS (2)
  - DEHYDRATION [None]
  - VOMITING [None]
